FAERS Safety Report 6782544-0 (Version None)
Quarter: 2010Q2

REPORT INFORMATION
  Report Type: 
  Country: None (occurrence: None)
  Receive Date: 20100621
  Receipt Date: 20100610
  Transmission Date: 20101027
  Serious: Yes (Disabling)
  Sender: FDA-Public Use
  Company Number: FR-NAPPMUNDI-GBR-2010-0006690

PATIENT
  Age: 87 Year
  Sex: Female

DRUGS (14)
  1. OXYCONTIN [Suspect]
     Indication: DRUG USE FOR UNKNOWN INDICATION
     Dosage: 20 MG, BID
     Dates: start: 20100212, end: 20100214
  2. DIANTALVIC [Suspect]
     Indication: DRUG USE FOR UNKNOWN INDICATION
     Dosage: 2 UNIT, TID
     Route: 065
     Dates: end: 20100214
  3. COLCHICINE [Concomitant]
  4. CRESTOR [Concomitant]
  5. FONZYLANE [Concomitant]
     Dosage: 150 MG, BID
  6. KARDEGIC                           /00002703/ [Concomitant]
     Dosage: 160 MG, DAILY
  7. LASILIX                            /00032601/ [Concomitant]
     Dosage: 40 MG, DAILY
  8. LYRICA [Concomitant]
     Dosage: 150 MG, BID
  9. MOPRAL                             /00661201/ [Concomitant]
  10. PREVISCAN                          /00261401/ [Concomitant]
     Dosage: UNK
  11. RIVOTRIL [Concomitant]
     Dosage: 1 MG, NOCTE
  12. SEROPLEX [Concomitant]
     Dosage: 1 TABLET, DAILY
  13. TEMERIT                            /01339101/ [Concomitant]
     Dosage: 5 MG, DAILY
  14. TARDYFERON                         /00023503/ [Concomitant]
     Dosage: 1 TABLET, DAILY

REACTIONS (6)
  - CONSTIPATION [None]
  - DEHYDRATION [None]
  - DEPRESSED LEVEL OF CONSCIOUSNESS [None]
  - LUNG DISORDER [None]
  - MIOSIS [None]
  - RESPIRATORY DISTRESS [None]
